FAERS Safety Report 5042267-5 (Version None)
Quarter: 2006Q2

REPORT INFORMATION
  Report Type: 
  Country: None (occurrence: None)
  Receive Date: 20060627
  Receipt Date: 20060613
  Transmission Date: 20061013
  Serious: Yes (Hospitalization, Other)
  Sender: FDA-Public Use
  Company Number: 2006076526

PATIENT
  Age: 54 Year
  Sex: Male

DRUGS (1)
  1. CELEBREX [Suspect]
     Indication: MYOCARDIAL INFARCTION
     Dosage: 800 MG (400 MG, 2 IN 1 D)
     Dates: start: 19990801

REACTIONS (7)
  - BLOOD CHOLESTEROL INCREASED [None]
  - CARDIAC FAILURE CONGESTIVE [None]
  - CARDIAC VALVE DISEASE [None]
  - HYPERTENSION [None]
  - INTRACARDIAC THROMBUS [None]
  - MYOCARDIAL INFARCTION [None]
  - NEOPLASM MALIGNANT [None]
